FAERS Safety Report 9841218 (Version 1)
Quarter: 2014Q1

REPORT INFORMATION
  Report Type: Spontaneous
  Country: US (occurrence: US)
  Receive Date: 20140124
  Receipt Date: 20140124
  Transmission Date: 20141002
  Serious: Yes (Hospitalization)
  Sender: FDA-Public Use
  Company Number: US-NOVOPROD-398302

PATIENT
  Age: 60 Year
  Sex: Female

DRUGS (5)
  1. NOVOLOG FLEXPEN [Suspect]
     Indication: TYPE 2 DIABETES MELLITUS
     Dosage: 14 U, UNK
     Route: 058
     Dates: start: 201311
  2. NOVOLOG FLEXPEN [Suspect]
     Dosage: 7 U, UNK
     Route: 058
     Dates: start: 20140115
  3. LANTUS [Concomitant]
     Indication: TYPE 2 DIABETES MELLITUS
     Dosage: UNK
     Route: 058
     Dates: start: 201311
  4. DIOVAN [Concomitant]
     Indication: BLOOD PRESSURE INCREASED
  5. METOPROLOL [Concomitant]
     Indication: BLOOD PRESSURE INCREASED

REACTIONS (2)
  - Heart rate increased [Recovered/Resolved]
  - Blood glucose decreased [Unknown]
